FAERS Safety Report 8029496-3 (Version None)
Quarter: 2012Q1

REPORT INFORMATION
  Report Type: 
  Country: None (occurrence: None)
  Receive Date: 20120109
  Receipt Date: 20111230
  Transmission Date: 20120608
  Serious: Yes (Hospitalization)
  Sender: FDA-Public Use
  Company Number: US-BIOGENIDEC-2011BI033866

PATIENT
  Age: 35 Year
  Sex: Female

DRUGS (2)
  1. PHENERGAN [Concomitant]
     Indication: PREMEDICATION
     Dates: start: 20110201, end: 20110201
  2. TYSABRI [Suspect]
     Indication: MULTIPLE SCLEROSIS
     Route: 042
     Dates: start: 20070914

REACTIONS (12)
  - SEPSIS [None]
  - INTERVERTEBRAL DISC PROTRUSION [None]
  - URINARY TRACT INFECTION [None]
  - RENAL FAILURE [None]
  - URETHRAL PAIN [None]
  - DRUG WITHDRAWAL SYNDROME [None]
  - DIZZINESS [None]
  - HEADACHE [None]
  - POLYCYSTIC OVARIES [None]
  - LOSS OF CONTROL OF LEGS [None]
  - PAIN [None]
  - SLEEP APNOEA SYNDROME [None]
